FAERS Safety Report 5150415-1 (Version None)
Quarter: 2006Q4

REPORT INFORMATION
  Report Type: 
  Country: None (occurrence: None)
  Receive Date: 20061114
  Receipt Date: 20060921
  Transmission Date: 20070319
  Serious: Yes (Other)
  Sender: FDA-Public Use
  Company Number: CA-ROCHE-464486

PATIENT
  Age: 41 Year
  Sex: Female

DRUGS (3)
  1. PEGASYS [Suspect]
     Indication: HEPATITIS C
     Route: 058
     Dates: start: 20060605
  2. COPEGUS [Suspect]
     Indication: HEPATITIS C
     Route: 048
     Dates: start: 20060605
  3. GENTAMICIN [Concomitant]
     Dates: start: 20060907, end: 20060914

REACTIONS (3)
  - OBSTRUCTION [None]
  - RETINAL HAEMORRHAGE [None]
  - RETINOPATHY [None]
